FAERS Safety Report 8413377-7 (Version None)
Quarter: 2012Q2

REPORT INFORMATION
  Report Type: 
  Country: None (occurrence: None)
  Receive Date: 20120605
  Receipt Date: 20120530
  Transmission Date: 20120825
  Serious: Yes (Hospitalization)
  Sender: FDA-Public Use
  Company Number: PHHY2012US045115

PATIENT
  Age: 25 Year
  Sex: Female

DRUGS (7)
  1. LORAZEPAM [Concomitant]
     Indication: ACUTE PSYCHOSIS
  2. HALOPERIDOL [Suspect]
     Indication: ACUTE PSYCHOSIS
     Dosage: 2.5 MG, DAILY
  3. RISPERIDONE [Suspect]
     Indication: ACUTE PSYCHOSIS
     Dosage: 2 MG, UNK
  4. VITAMINS                           /90003601/ [Concomitant]
  5. AMOXICILLIN [Concomitant]
  6. FOLIC ACID [Concomitant]
  7. FERROUS SULFATE TAB [Concomitant]

REACTIONS (15)
  - NEUROLEPTIC MALIGNANT SYNDROME [None]
  - PYREXIA [None]
  - ACUTE PSYCHOSIS [None]
  - ALANINE AMINOTRANSFERASE INCREASED [None]
  - HEART RATE INCREASED [None]
  - MATERNAL EXPOSURE DURING PREGNANCY [None]
  - BLOOD PRESSURE DECREASED [None]
  - TREMOR [None]
  - MAJOR DEPRESSION [None]
  - HYPERTONIA [None]
  - NORMAL NEWBORN [None]
  - MENTAL STATUS CHANGES [None]
  - ESCHERICHIA TEST POSITIVE [None]
  - MUSCLE RIGIDITY [None]
  - ASPARTATE AMINOTRANSFERASE INCREASED [None]
